FAERS Safety Report 16351492 (Version 1)
Quarter: 2019Q2

REPORT INFORMATION
  Report Type: Spontaneous
  Country: US (occurrence: US)
  Receive Date: 20190418
  Receipt Date: 20190418
  Transmission Date: 20190711
  Serious: Yes (Hospitalization)
  Sender: FDA-Public Use
  Company Number: None

PATIENT
  Sex: Female

DRUGS (2)
  1. MYCOPHENOLIC ACID DR 180MG TAB [Suspect]
     Active Substance: MYCOPHENOLIC ACID
     Indication: RENAL TRANSPLANT
     Route: 048
     Dates: start: 2017
  2. FLUCONAZOLE 100MG [Suspect]
     Active Substance: FLUCONAZOLE
     Indication: RENAL TRANSPLANT
     Route: 048
     Dates: start: 2017

REACTIONS (2)
  - Cytomegalovirus infection [None]
  - Gastroenteritis norovirus [None]
